FAERS Safety Report 16243390 (Version 1)
Quarter: 2019Q2

REPORT INFORMATION
  Report Type: Spontaneous
  Country: US (occurrence: US)
  Receive Date: 20190323
  Receipt Date: 20190323
  Transmission Date: 20190711
  Serious: No
  Sender: FDA-Public Use
  Company Number: None

PATIENT
  Age: 63 Year
  Sex: Male

DRUGS (1)
  1. SUTENT [Suspect]
     Active Substance: SUNITINIB MALATE
     Indication: RENAL DISORDER
     Dates: start: 201902

REACTIONS (3)
  - Diarrhoea [None]
  - Compression fracture [None]
  - Neutropenia [None]

NARRATIVE: CASE EVENT DATE: 20190323
